FAERS Safety Report 6619476-4 (Version None)
Quarter: 2010Q1

REPORT INFORMATION
  Report Type: 
  Country: None (occurrence: None)
  Receive Date: 20100304
  Receipt Date: 20100216
  Transmission Date: 20100710
  Serious: Yes (Congenital Anomaly)
  Sender: FDA-Public Use
  Company Number: KV201000061

PATIENT
  Sex: Female

DRUGS (1)
  1. PRENATAL (PRENATAL MULTIVITAMIN) TABLET [Suspect]
     Indication: DRUG EXPOSURE DURING PREGNANCY
     Dosage: ONE TABLET DAILY
     Dates: start: 20061122

REACTIONS (3)
  - MATERNAL DRUGS AFFECTING FOETUS [None]
  - RENAL APLASIA [None]
  - RENAL HYPERTROPHY [None]
